FAERS Safety Report 5008251-2 (Version None)
Quarter: 2006Q2

REPORT INFORMATION
  Report Type: 
  Country: None (occurrence: None)
  Receive Date: 20060523
  Receipt Date: 20060403
  Transmission Date: 20061013
  Serious: Yes (Other)
  Sender: FDA-Public Use
  Company Number: PHBS2006HU05086

PATIENT
  Age: 65 Year
  Sex: Female
  Weight: 52 kg

DRUGS (5)
  1. ZOMETA [Suspect]
     Indication: METASTASES TO BONE
     Dosage: 4 MG, EVERY 28 DAYS
     Route: 042
     Dates: start: 20020101, end: 20051201
  2. AREDIA [Suspect]
     Indication: METASTASES TO BONE
     Dosage: 90 MG, EVERY 28 DAYS
     Route: 042
     Dates: start: 19970301, end: 20020101
  3. EPIRUBICIN [Concomitant]
     Indication: METASTASES TO BONE
     Dosage: 90 MG, EVERY 21. DAY
     Route: 065
     Dates: start: 19970505, end: 19971006
  4. FLUOROURACIL [Concomitant]
     Dosage: 1000 MG, EVERY 21. DAY
     Route: 065
     Dates: start: 19970505, end: 19971006
  5. METHYLPREDNISOLONE [Concomitant]
     Dosage: 6 MG/D
     Route: 065
     Dates: end: 20050101

REACTIONS (7)
  - OSTEOMYELITIS [None]
  - OSTEONECROSIS [None]
  - PAIN [None]
  - PURULENT DISCHARGE [None]
  - SURGERY [None]
  - SWELLING [None]
  - TOOTH EXTRACTION [None]
